FAERS Safety Report 12866347 (Version 2)
Quarter: 2016Q4

REPORT INFORMATION
  Report Type: Spontaneous
  Country: US (occurrence: US)
  Receive Date: 20161020
  Receipt Date: 20161206
  Transmission Date: 20170207
  Serious: Yes (Other)
  Sender: FDA-Public Use
  Company Number: US-PFIZER INC-2016487855

PATIENT
  Age: 47 Year
  Sex: Female
  Weight: 84 kg

DRUGS (6)
  1. CHANTIX [Suspect]
     Active Substance: VARENICLINE TARTRATE
     Indication: SMOKING CESSATION THERAPY
     Dosage: 1 DF, 1X/DAY
     Route: 048
     Dates: start: 20160810
  2. GABAPENTIN. [Concomitant]
     Active Substance: GABAPENTIN
     Indication: BACK DISORDER
     Dosage: 1200 MG, DAILY
     Dates: start: 2016
  3. TIZANIDINE. [Concomitant]
     Active Substance: TIZANIDINE
     Indication: BACK DISORDER
     Dosage: 4 MG, 3X/DAY
     Dates: start: 2016
  4. HYDROCHLOROTHIAZIDE. [Concomitant]
     Active Substance: HYDROCHLOROTHIAZIDE
     Indication: BLOOD PRESSURE ABNORMAL
     Dosage: 25 MG, 1X/DAY
  5. CHANTIX [Suspect]
     Active Substance: VARENICLINE TARTRATE
     Dosage: 2 DF, 1X/DAY
     Route: 048
     Dates: end: 201610
  6. CITALOPRAM [Concomitant]
     Active Substance: CITALOPRAM HYDROBROMIDE
     Indication: DEPRESSION
     Dosage: 10 MG, 1X/DAY

REACTIONS (11)
  - Dyspnoea [Not Recovered/Not Resolved]
  - Crying [Not Recovered/Not Resolved]
  - Myocardial infarction [Recovered/Resolved]
  - Anxiety [Not Recovered/Not Resolved]
  - Abnormal behaviour [Not Recovered/Not Resolved]
  - Attention deficit/hyperactivity disorder [Not Recovered/Not Resolved]
  - Impaired work ability [Not Recovered/Not Resolved]
  - Chest pain [Recovered/Resolved]
  - Suicidal ideation [Recovered/Resolved]
  - Confusional state [Not Recovered/Not Resolved]
  - Tremor [Not Recovered/Not Resolved]

NARRATIVE: CASE EVENT DATE: 2016
